FAERS Safety Report 16003329 (Version 2)
Quarter: 2019Q1

REPORT INFORMATION
  Report Type: Spontaneous
  Country: JP (occurrence: JP)
  Receive Date: 20190226
  Receipt Date: 20190314
  Transmission Date: 20190418
  Serious: Yes (Hospitalization, Other)
  Sender: FDA-Public Use
  Company Number: JP-TAKEDA-2019TJP004187

PATIENT
  Age: 82 Year
  Sex: Female
  Weight: 33.3 kg

DRUGS (1)
  1. TAKEPRON CAPSULES 15 [Suspect]
     Active Substance: LANSOPRAZOLE
     Indication: PRODUCT USED FOR UNKNOWN INDICATION
     Dosage: UNK
     Route: 048

REACTIONS (4)
  - Subacute combined cord degeneration [Recovering/Resolving]
  - Folate deficiency [Recovering/Resolving]
  - Ileus [Recovering/Resolving]
  - Pneumonia [Recovering/Resolving]
